FAERS Safety Report 20217381 (Version 1)
Quarter: 2021Q4

REPORT INFORMATION
  Report Type: Spontaneous
  Country: US (occurrence: US)
  Receive Date: 20211222
  Receipt Date: 20211222
  Transmission Date: 20220304
  Serious: No
  Sender: FDA-Public Use
  Company Number: US-drreddys-SPO/USA/21/0144796

PATIENT
  Age: 64 Year
  Sex: Male
  Weight: 85.5 kg

DRUGS (1)
  1. CIPROFLOXACIN AND DEXAMETHASONE [Suspect]
     Active Substance: CIPROFLOXACIN HYDROCHLORIDE\DEXAMETHASONE
     Indication: Otitis externa
     Dosage: 4 DROPS TWICE DAILY
     Dates: start: 20211211

REACTIONS (6)
  - Hypoacusis [Unknown]
  - Ear disorder [Unknown]
  - Drug ineffective [Unknown]
  - Product quality issue [Unknown]
  - Product use in unapproved indication [Unknown]
  - Medication error [Unknown]
